FAERS Safety Report 8965362 (Version 1)
Quarter: 2012Q4

REPORT INFORMATION
  Report Type: 
  Country: FR (occurrence: FR)
  Receive Date: 20121213
  Receipt Date: 20121213
  Transmission Date: 20130627
  Serious: Yes (Hospitalization, Other)
  Sender: FDA-Public Use
  Company Number: FR-ELI_LILLY_AND_COMPANY-FR201212000232

PATIENT
  Age: 84 Year
  Sex: Female

DRUGS (8)
  1. ZYPREXA [Suspect]
     Dosage: 5 mg, qd
     Route: 048
     Dates: end: 201202
  2. KARDEGIC [Concomitant]
     Dosage: 75 mg, unknown
  3. COAPROVEL [Concomitant]
  4. EXELON [Concomitant]
     Dosage: 4500 ug, bid
     Route: 048
     Dates: end: 201202
  5. SEROPRAM [Concomitant]
     Dosage: 20 mg, qd
     Route: 048
     Dates: end: 201202
  6. LOVENOX [Concomitant]
     Dosage: UNK IU, UNK
  7. IMOVANE [Concomitant]
     Dosage: 7.5 mg, unknown
  8. PROTELOS [Concomitant]
     Dosage: 2 g, unknown

REACTIONS (6)
  - Fracture [Unknown]
  - Dysarthria [Recovering/Resolving]
  - Intermittent claudication [Recovering/Resolving]
  - Extrapyramidal disorder [Recovering/Resolving]
  - Muscle rigidity [Recovering/Resolving]
  - Resting tremor [Recovering/Resolving]
